FAERS Safety Report 26065657 (Version 1)
Quarter: 2025Q4

REPORT INFORMATION
  Report Type: Spontaneous
  Country: JP (occurrence: JP)
  Receive Date: 20251119
  Receipt Date: 20251119
  Transmission Date: 20260118
  Serious: Yes (Other)
  Sender: PFIZER
  Company Number: JP-MLMSERVICE-20251105-PI702495-00077-1

PATIENT
  Age: 70 Year
  Sex: Female

DRUGS (3)
  1. BEVACIZUMAB [Suspect]
     Active Substance: BEVACIZUMAB
     Indication: Colorectal cancer metastatic
     Dosage: 7.5 MG/KG
  2. OXALIPLATIN [Suspect]
     Active Substance: OXALIPLATIN
     Indication: Colorectal cancer metastatic
     Dosage: TWICE DAILY ON DAYS 1-14 OF A 21-DAY CYCLE
  3. CAPECITABINE [Suspect]
     Active Substance: CAPECITABINE
     Indication: Colorectal cancer metastatic
     Dosage: TWICE DAILY ON DAYS 1-14 OF A 21-DAY CYCLE

REACTIONS (1)
  - Hepatic function abnormal [Recovered/Resolved]
